FAERS Safety Report 12214868 (Version 1)
Quarter: 2016Q1

REPORT INFORMATION
  Report Type: Spontaneous
  Country: US (occurrence: US)
  Receive Date: 20160328
  Receipt Date: 20160328
  Transmission Date: 20160526
  Serious: No
  Sender: FDA-Public Use
  Company Number: US-BRACCO-011934

PATIENT

DRUGS (1)
  1. GASTROGRAFIN [Suspect]
     Active Substance: DIATRIZOATE MEGLUMINE\DIATRIZOATE SODIUM
     Indication: COMPUTERISED TOMOGRAM
     Dosage: 5 ML MIXED WITH 12 OZ GINGER ALE
     Route: 048

REACTIONS (3)
  - Product taste abnormal [Unknown]
  - Product physical issue [Unknown]
  - Product odour abnormal [Unknown]
